FAERS Safety Report 23850877 (Version 2)
Quarter: 2024Q2

REPORT INFORMATION
  Report Type: Spontaneous
  Country: IN (occurrence: IN)
  Receive Date: 20240514
  Receipt Date: 20240527
  Transmission Date: 20240716
  Serious: Yes (Hospitalization, Other)
  Sender: FDA-Public Use
  Company Number: IN-NOVOPROD-1217012

PATIENT
  Age: 28 Year
  Sex: Female

DRUGS (2)
  1. INSULIN HUMAN [Suspect]
     Active Substance: INSULIN HUMAN
     Indication: Type 2 diabetes mellitus
     Dosage: UNK
  2. LEVOTHYROXINE SODIUM [Concomitant]
     Active Substance: LEVOTHYROXINE SODIUM
     Indication: Hypothyroidism
     Dosage: 100 ?G ONCE DAILY

REACTIONS (4)
  - Postpartum haemorrhage [Recovered/Resolved]
  - Diabetic ketoacidosis [Recovered/Resolved]
  - Foetal death [Unknown]
  - Maternal exposure during pregnancy [Unknown]
